FAERS Safety Report 7516335-X (Version None)
Quarter: 2011Q2

REPORT INFORMATION
  Report Type: 
  Country: None (occurrence: None)
  Receive Date: 20110601
  Receipt Date: 20110527
  Transmission Date: 20111010
  Serious: Yes (Other)
  Sender: FDA-Public Use
  Company Number: US-PFIZER INC-2011115536

PATIENT
  Sex: Female
  Weight: 47.619 kg

DRUGS (2)
  1. REVATIO [Suspect]
     Indication: PULMONARY HYPERTENSION
  2. REVATIO [Suspect]
     Indication: CARDIAC DISORDER
     Dosage: 20 MG, 3X/DAY
     Route: 048
     Dates: start: 20110101

REACTIONS (5)
  - VISUAL IMPAIRMENT [None]
  - DISORIENTATION [None]
  - WEIGHT DECREASED [None]
  - DIZZINESS [None]
  - HEARING IMPAIRED [None]
